FAERS Safety Report 8842896 (Version 1)
Quarter: 2012Q4

REPORT INFORMATION
  Report Type: 
  Country: US (occurrence: US)
  Receive Date: 20121016
  Receipt Date: 20121016
  Transmission Date: 20130627
  Serious: No
  Sender: FDA-Public Use
  Company Number: US-B.I. PHARMACEUTICALS,INC./RIDGEFIELD-2012-BP-23956BP

PATIENT
  Age: 72 Year
  Sex: Male

DRUGS (11)
  1. PRADAXA [Suspect]
     Dosage: 300 mg
     Route: 048
  2. INSULIN [Concomitant]
  3. DIGOXIN [Concomitant]
  4. FOLIC ACID [Concomitant]
  5. METHIMAZOLE [Concomitant]
  6. RANTIDINE [Concomitant]
  7. FERROUS SULFATE [Concomitant]
  8. ACETAMINOPHEN [Concomitant]
  9. METOPROLOL [Concomitant]
  10. PSYLLIUM [Concomitant]
  11. LATANOPROST SOLUTION [Concomitant]
     Route: 031

REACTIONS (1)
  - International normalised ratio increased [Unknown]
